FAERS Safety Report 7361417-9 (Version None)
Quarter: 2011Q1

REPORT INFORMATION
  Report Type: 
  Country: None (occurrence: None)
  Receive Date: 20110318
  Receipt Date: 20110221
  Transmission Date: 20110831
  Serious: No
  Sender: FDA-Public Use
  Company Number: US-B.I. PHARMACEUTICALS,INC./RIDGEFIELD-2010-BP-14580BP

PATIENT
  Sex: Female

DRUGS (14)
  1. BONIVA [Concomitant]
  2. CALCIUM [Concomitant]
  3. PRADAXA [Suspect]
     Indication: ANTICOAGULANT THERAPY
  4. LASIX [Concomitant]
  5. PRADAXA [Suspect]
     Indication: ATRIAL FIBRILLATION
     Dosage: 300 MG
     Route: 048
     Dates: start: 20101101
  6. LIPITOR [Concomitant]
     Indication: BLOOD CHOLESTEROL INCREASED
  7. NEXIUM [Concomitant]
  8. ALDACTONE [Concomitant]
  9. KLOR-CON [Concomitant]
  10. ASPIRIN [Concomitant]
     Indication: PROPHYLAXIS
  11. MULTIVITAMIN [Concomitant]
     Indication: PROPHYLAXIS
  12. AMIODARONE HCL [Concomitant]
     Indication: ATRIAL FIBRILLATION
  13. ASCORBIC ACID [Concomitant]
  14. BYSTOLIC [Concomitant]

REACTIONS (5)
  - DECREASED APPETITE [None]
  - RETCHING [None]
  - ABDOMINAL DISCOMFORT [None]
  - VOMITING [None]
  - ABDOMINAL PAIN [None]
